FAERS Safety Report 6294990-2 (Version None)
Quarter: 2009Q3

REPORT INFORMATION
  Report Type: 
  Country: None (occurrence: None)
  Receive Date: 20090803
  Receipt Date: 20090729
  Transmission Date: 20100115
  Serious: Yes (Other)
  Sender: FDA-Public Use
  Company Number: US-MERCK-0907USA05481

PATIENT
  Age: 62 Year
  Sex: Female
  Weight: 46 kg

DRUGS (2)
  1. FOSAMAX [Suspect]
     Route: 048
  2. BONIVA [Suspect]
     Indication: OSTEOPOROSIS
     Route: 048
     Dates: start: 20090529

REACTIONS (5)
  - HAIR DISORDER [None]
  - HAIR TEXTURE ABNORMAL [None]
  - OESOPHAGEAL PAIN [None]
  - PAIN [None]
  - PAIN IN EXTREMITY [None]
